FAERS Safety Report 23259081 (Version 1)
Quarter: 2023Q4

REPORT INFORMATION
  Report Type: Spontaneous
  Country: US (occurrence: US)
  Receive Date: 20231204
  Receipt Date: 20231204
  Transmission Date: 20240110
  Serious: No
  Sender: FDA-Public Use
  Company Number: US-HALOZYME THERAPEUTICS, INC.-2022-LIT-TE-0004

PATIENT

DRUGS (1)
  1. TESTOSTERONE ENANTHATE [Suspect]
     Active Substance: TESTOSTERONE ENANTHATE
     Indication: Product used for unknown indication
     Dosage: UNK
     Route: 065

REACTIONS (1)
  - Therapeutic response unexpected [Unknown]
